FAERS Safety Report 22137812 (Version 1)
Quarter: 2023Q1

REPORT INFORMATION
  Report Type: Spontaneous
  Country: US (occurrence: US)
  Receive Date: 20230325
  Receipt Date: 20230325
  Transmission Date: 20230418
  Serious: No
  Sender: FDA-Public Use
  Company Number: US-002147023-NVSC2023US069651

PATIENT
  Age: 70 Year
  Sex: Female
  Weight: 80.73 kg

DRUGS (1)
  1. AFINITOR [Suspect]
     Active Substance: EVEROLIMUS
     Indication: Breast cancer
     Dosage: 10 MG, QD, (EVERY THIRD DAY), (5 MG ON ALL OTHER DAYS)
     Route: 048
     Dates: start: 20221031

REACTIONS (1)
  - Diarrhoea [Recovering/Resolving]

NARRATIVE: CASE EVENT DATE: 20221126
